FAERS Safety Report 21766860 (Version 1)
Quarter: 2022Q4

REPORT INFORMATION
  Report Type: Spontaneous
  Country: FR (occurrence: FR)
  Receive Date: 20221222
  Receipt Date: 20221222
  Transmission Date: 20230113
  Serious: Yes (Other)
  Sender: FDA-Public Use
  Company Number: None

PATIENT
  Age: 10 Year
  Sex: Male
  Weight: 67 kg

DRUGS (15)
  1. CYCLOPHOSPHAMIDE [Suspect]
     Active Substance: CYCLOPHOSPHAMIDE
     Indication: Acute lymphocytic leukaemia
     Dosage: 3980 MG (1 TOTAL)
     Route: 042
     Dates: start: 20191209, end: 20200619
  2. CYTARABINE [Suspect]
     Active Substance: CYTARABINE
     Indication: Acute lymphocytic leukaemia
     Dosage: 300 MG (1 TOTAL)
     Route: 037
     Dates: start: 20191025, end: 20210729
  3. CYTARABINE [Suspect]
     Active Substance: CYTARABINE
     Dosage: 1.7G (1 TOTAL)
     Route: 042
     Dates: start: 20191211, end: 20200721
  4. METHOTREXATE [Suspect]
     Active Substance: METHOTREXATE
     Indication: Acute lymphocytic leukaemia
     Dosage: 27.5MG (1 TOTAL)
     Route: 042
     Dates: start: 20200227, end: 20200409
  5. METHOTREXATE [Suspect]
     Active Substance: METHOTREXATE
     Dosage: 144MG (1 TOTAL)
     Route: 037
     Dates: start: 20191014, end: 20201016
  6. METHOTREXATE [Suspect]
     Active Substance: METHOTREXATE
     Dosage: 36MG (1 TOTAL)
     Route: 048
     Dates: start: 20210731, end: 20220119
  7. DEXAMETHASONE [Suspect]
     Active Substance: DEXAMETHASONE
     Indication: Acute lymphocytic leukaemia
     Dosage: 64.4MG (1 TOTAL)
     Route: 048
     Dates: start: 20200504, end: 20200524
  8. VINCRISTINE [Suspect]
     Active Substance: VINCRISTINE
     Indication: Acute lymphocytic leukaemia
     Dosage: 51.6MG (1 TOTAL)
     Route: 042
     Dates: start: 20191021, end: 20210722
  9. MERCAPTOPURINE [Suspect]
     Active Substance: MERCAPTOPURINE
     Indication: Acute lymphocytic leukaemia
     Dosage: 17.9G (1 TOTAL)
     Route: 048
     Dates: start: 20191209, end: 20220119
  10. ERWINASE [Suspect]
     Active Substance: ASPARAGINASE ERWINIA CHRYSANTHEMI
     Indication: Acute lymphocytic leukaemia
     Dosage: 193200 IU (1 TOTAL)
     Route: 042
     Dates: start: 20200507, end: 20200520
  11. DOXORUBICIN [Suspect]
     Active Substance: DOXORUBICIN
     Indication: Acute lymphocytic leukaemia
     Dosage: 166MG (1 TOTAL)
     Route: 042
     Dates: start: 20200504, end: 20200525
  12. PEGASPARGASE [Suspect]
     Active Substance: PEGASPARGASE
     Indication: Acute lymphocytic leukaemia
     Dosage: 6500 IU (1 TOTAL)
     Route: 042
     Dates: start: 20191026, end: 20191223
  13. DAUNORUBICIN [Suspect]
     Active Substance: DAUNORUBICIN
     Indication: Acute lymphocytic leukaemia
     Dosage: 156MG (1 TOTAL)
     Route: 042
     Dates: start: 20191014, end: 20191105
  14. THIOGUANINE [Suspect]
     Active Substance: THIOGUANINE
     Indication: Acute lymphocytic leukaemia
     Dosage: 664MG (1 TOTAL)
     Route: 048
     Dates: start: 20200619, end: 20200630
  15. HYDROCORTISONE [Suspect]
     Active Substance: HYDROCORTISONE
     Indication: Acute lymphocytic leukaemia
     Dosage: 90MG (1 TOTAL)
     Route: 037
     Dates: start: 20191025, end: 20200622

REACTIONS (3)
  - Chronic hepatitis [Not Recovered/Not Resolved]
  - Hepatic fibrosis [Not Recovered/Not Resolved]
  - Hepatic steatosis [Not Recovered/Not Resolved]

NARRATIVE: CASE EVENT DATE: 20220316
